FAERS Safety Report 24372294 (Version 1)
Quarter: 2024Q3

REPORT INFORMATION
  Report Type: Spontaneous
  Country: GB (occurrence: GB)
  Receive Date: 20240927
  Receipt Date: 20240927
  Transmission Date: 20241017
  Serious: Yes (Other)
  Sender: TORRENT
  Company Number: None

PATIENT
  Age: 28 Year
  Sex: Female

DRUGS (7)
  1. LAMOTRIGINE [Suspect]
     Active Substance: LAMOTRIGINE
     Indication: Affective disorder
     Dosage: 150MG BD, INCREASED TO 175MG BD.
     Route: 065
     Dates: start: 20240816
  2. DILTIAZEM [Concomitant]
     Active Substance: DILTIAZEM
     Indication: Sinus tachycardia
     Dosage: UNKNOWN
     Route: 065
  3. LORAZEPAM [Concomitant]
     Active Substance: LORAZEPAM
     Indication: Emotional distress
     Dosage: UNKNOWN
     Route: 065
     Dates: end: 20240823
  4. METFORMIN [Concomitant]
     Active Substance: METFORMIN HYDROCHLORIDE
     Indication: Polycystic ovaries
     Dosage: UNKNOWN
     Route: 065
  5. OMEPRAZOLE [Concomitant]
     Active Substance: OMEPRAZOLE
     Indication: Gastrooesophageal reflux disease
     Dosage: UNKNOWN
     Route: 065
  6. PROMETHAZINE [Concomitant]
     Active Substance: PROMETHAZINE HYDROCHLORIDE
     Indication: Emotional distress
     Dosage: UNKNOWN
     Route: 065
     Dates: end: 20240823
  7. SERTRALINE [Concomitant]
     Active Substance: SERTRALINE HYDROCHLORIDE
     Indication: Depression
     Dosage: UNKNOWN
     Route: 065

REACTIONS (3)
  - Photopsia [Not Recovered/Not Resolved]
  - Increased tendency to bruise [Not Recovered/Not Resolved]
  - Rapid eye movement sleep behaviour disorder [Not Recovered/Not Resolved]

NARRATIVE: CASE EVENT DATE: 20240909
